FAERS Safety Report 21422792 (Version 1)
Quarter: 2022Q4

REPORT INFORMATION
  Report Type: Report from Study
  Country: FR (occurrence: None)
  Receive Date: 20221007
  Receipt Date: 20221007
  Transmission Date: 20230112
  Serious: Yes (Death, Life-Threatening, Hospitalization)
  Sender: FDA-Public Use
  Company Number: 2022A334715

PATIENT
  Age: 32769 Day
  Sex: Male
  Weight: 56 kg

DRUGS (16)
  1. EVUSHELD [Suspect]
     Active Substance: CILGAVIMAB\TIXAGEVIMAB
     Indication: COVID-19 prophylaxis
     Dosage: ONCE/SINGLE ADMINISTRATION
     Route: 030
     Dates: start: 202205
  2. NEORAL [Concomitant]
     Active Substance: CYCLOSPORINE
     Dosage: 75MG IN THE MORNING AND IN THE EVENING
     Route: 065
  3. BACTRIM [Concomitant]
     Active Substance: SULFAMETHOXAZOLE\TRIMETHOPRIM
     Dosage: 400/80 MG PER OS AT ONE TABLET IN THE MORNING
     Route: 065
  4. VALGANCICLOVIR [Concomitant]
     Active Substance: VALGANCICLOVIR
     Dosage: 450 MG ONE TABLET EVERY 48 HOURS
     Route: 065
  5. TAFAMIDIS [Concomitant]
     Active Substance: TAFAMIDIS
     Dosage: AT ONE TABLET IN THE MORNING
     Route: 065
  6. FUROSEMIDE [Concomitant]
     Active Substance: FUROSEMIDE
     Dosage: AT ONE TABLET IN THE MORNING
     Route: 065
  7. AMLODIPINE BESYLATE [Concomitant]
     Active Substance: AMLODIPINE BESYLATE
     Dosage: ONE CAPSULE IN THE MORNING AND IN THE EVENING
     Route: 065
  8. LANSOPRAZOLE [Concomitant]
     Active Substance: LANSOPRAZOLE
     Dosage: 15 MG PER OS AT ONE TABLET IN THE EVENING
     Route: 065
  9. PREDNISONE [Concomitant]
     Active Substance: PREDNISONE
     Dosage: 5 MG AT TWO TABLETS IN THE MORNING
     Route: 065
  10. TEGRETOL [Concomitant]
     Active Substance: CARBAMAZEPINE
     Dosage: AT ONE TABLET IN THE MORNING IF NEVRALGIA
     Route: 065
  11. MIDODRINE HYDROCHLORIDE [Concomitant]
     Active Substance: MIDODRINE HYDROCHLORIDE
     Dosage: AT 2 TABLET ON 8AM, ON 12PM AND 3PM
     Route: 065
  12. POTASSIUM CHLORIDE [Concomitant]
     Active Substance: POTASSIUM CHLORIDE
     Dosage: AT ONE CAPSULE IN THE MORNING
     Route: 065
  13. CHOLECALCIFEROL [Concomitant]
     Active Substance: CHOLECALCIFEROL
     Dosage: 100000 EVERY 3 MONTHS
     Route: 065
  14. DUPHALAC [Concomitant]
     Active Substance: LACTULOSE
     Dosage: 2 POUCHES IN THE MORNING
     Route: 065
  15. DEXERYL [Concomitant]
     Dosage: AT ONE APPLICATION DAILY.
     Route: 065
  16. CYCLOSPORINE [Concomitant]
     Active Substance: CYCLOSPORINE
     Route: 065

REACTIONS (3)
  - Cardiac failure [Fatal]
  - COVID-19 [Fatal]
  - Multiple organ dysfunction syndrome [Unknown]

NARRATIVE: CASE EVENT DATE: 20220529
